FAERS Safety Report 9515378 (Version 1)
Quarter: 2013Q3

REPORT INFORMATION
  Report Type: Spontaneous
  Country: US (occurrence: US)
  Receive Date: 20130911
  Receipt Date: 20130911
  Transmission Date: 20140515
  Serious: Yes (Hospitalization, Other)
  Sender: FDA-Public Use
  Company Number: US-BAYER-2013-106842

PATIENT
  Age: 47 Year
  Sex: Female

DRUGS (8)
  1. YASMIN [Suspect]
  2. YAZ [Suspect]
  3. LEXAPRO [Concomitant]
     Dosage: 10 MG, UNK
     Dates: start: 20090727
  4. LEXAPRO [Concomitant]
     Dosage: 20 MG, UNK
     Dates: start: 20111008, end: 20120119
  5. MUPIROCIN [Concomitant]
     Dosage: 2 %, UNK
     Dates: start: 20111008
  6. TORSEMIDE [Concomitant]
     Dosage: 20 MG, UNK
     Dates: start: 20111125
  7. PHENTERMINE HYDROCHLORIDE [Concomitant]
     Dosage: 37.5 MG, UNK
     Dates: start: 20111222
  8. LEVOFLOXACIN [Concomitant]
     Dosage: 500 MG, UNK
     Dates: start: 20111222

REACTIONS (3)
  - Pulmonary embolism [None]
  - Deep vein thrombosis [Recovered/Resolved]
  - Thrombophlebitis superficial [None]
